FAERS Safety Report 15645521 (Version 1)
Quarter: 2018Q4

REPORT INFORMATION
  Report Type: Spontaneous
  Country: US (occurrence: US)
  Receive Date: 20181121
  Receipt Date: 20181121
  Transmission Date: 20190205
  Serious: No
  Sender: FDA-Public Use
  Company Number: US-NEXGEN PHARMA, INC.-2059179

PATIENT
  Age: 25 Year
  Sex: Female

DRUGS (1)
  1. CHENODAL [Suspect]
     Active Substance: CHENODIOL
     Indication: DIARRHOEA NEONATAL
     Route: 048
     Dates: start: 20171219

REACTIONS (1)
  - Breast discharge [Recovering/Resolving]
